FAERS Safety Report 4838007-2 (Version None)
Quarter: 2005Q4

REPORT INFORMATION
  Report Type: 
  Country: None (occurrence: None)
  Receive Date: 20051128
  Receipt Date: 20051117
  Transmission Date: 20060501
  Serious: Yes (Other)
  Sender: FDA-Public Use
  Company Number: US-JNJFOC-20051104563

PATIENT
  Sex: Male

DRUGS (2)
  1. REMICADE [Suspect]
     Indication: CROHN'S DISEASE
     Route: 042
  2. AZULFIDINE [Concomitant]
     Indication: CROHN'S DISEASE

REACTIONS (3)
  - CANDIDIASIS [None]
  - LIVER DISORDER [None]
  - ULCER [None]
